FAERS Safety Report 4613138-0 (Version None)
Quarter: 2005Q1

REPORT INFORMATION
  Report Type: 
  Country: None (occurrence: None)
  Receive Date: 20050316
  Receipt Date: 20050302
  Transmission Date: 20050727
  Serious: Yes (Hospitalization, Disabling)
  Sender: FDA-Public Use
  Company Number: USA050392245

PATIENT
  Age: 65 Year
  Sex: Female

DRUGS (9)
  1. HUMULIN R [Suspect]
     Indication: DIABETES MELLITUS
     Dates: start: 20030302
  2. HUMULIN N [Suspect]
     Indication: DIABETES MELLITUS
     Dates: start: 19800101
  3. CELEBREX [Concomitant]
  4. LOPID [Concomitant]
  5. SYNTHROID [Concomitant]
  6. PROTONIX [Concomitant]
  7. CARAFATE [Concomitant]
  8. DARVOCET-N 100 [Concomitant]
  9. TYLENOL (CAPLET) [Concomitant]

REACTIONS (7)
  - BLOOD GLUCOSE INCREASED [None]
  - CORRECTIVE LENS USER [None]
  - DIALYSIS [None]
  - DRUG INEFFECTIVE [None]
  - HEADACHE [None]
  - RENAL FAILURE [None]
  - WEIGHT DECREASED [None]
